FAERS Safety Report 14968911 (Version 1)
Quarter: 2018Q2

REPORT INFORMATION
  Report Type: Spontaneous
  Country: GB (occurrence: GB)
  Receive Date: 20180604
  Receipt Date: 20180604
  Transmission Date: 20180711
  Serious: Yes (Hospitalization)
  Sender: FDA-Public Use
  Company Number: GB-PFIZER INC-2018220715

PATIENT
  Age: 5 Day
  Sex: Female
  Weight: 3.43 kg

DRUGS (4)
  1. EPANUTIN [Suspect]
     Active Substance: PHENYTOIN SODIUM
     Indication: SEIZURE
     Dosage: 6 G, DAILY, (0.4 G)
  2. EPANUTIN [Suspect]
     Active Substance: PHENYTOIN SODIUM
     Indication: EPILEPSY
  3. PHENOBARBITONE /00023201/ [Concomitant]
     Active Substance: PHENOBARBITAL
     Indication: SEIZURE
     Dosage: 5 G, DAILY, (0.33 G., SOLUBLE)
  4. PHENOBARBITONE /00023201/ [Concomitant]
     Active Substance: PHENOBARBITAL
     Indication: EPILEPSY
     Dosage: 1 G, DAILY, (0.06 G, TABLET)

REACTIONS (7)
  - Somnolence [Unknown]
  - Maternal exposure during pregnancy [Unknown]
  - Methaemoglobinaemia [Recovered/Resolved]
  - Toxicity to various agents [Recovered/Resolved]
  - Anaemia [Recovered/Resolved]
  - Haemorrhage [Unknown]
  - Maternal exposure during breast feeding [Unknown]
